FAERS Safety Report 10625553 (Version 1)
Quarter: 2014Q4

REPORT INFORMATION
  Report Type: Spontaneous
  Country: US (occurrence: None)
  Receive Date: 20141121
  Receipt Date: 20141121
  Transmission Date: 20150529
  Serious: No
  Sender: FDA-Public Use
  Company Number: 163-10004-14071069

PATIENT
  Age: 57 Year
  Sex: Female

DRUGS (9)
  1. NAPROXEN. [Concomitant]
     Active Substance: NAPROXEN
  2. ALLOPURINOL. [Concomitant]
     Active Substance: ALLOPURINOL
  3. METFORMIN HCL (METFORMIN HYDROCHLORIDE) [Concomitant]
  4. HYDROCHLOROTHIAZIDE. [Concomitant]
     Active Substance: HYDROCHLOROTHIAZIDE
  5. OTEZLA [Suspect]
     Active Substance: APREMILAST
     Indication: PSORIATIC ARTHROPATHY
     Route: 048
  6. LOSARTAN (LOSARTAN POTASSIUM) [Concomitant]
  7. VENFLAFAXIEN HCL (VENLAFAXINE HYDROCHLORIDE) [Concomitant]
  8. LANTUS (NSULIN GLARGINE) [Concomitant]
  9. JANUVIA(SITAGLIPTIN PHOSPHATE) [Concomitant]

REACTIONS (1)
  - Nausea [None]

NARRATIVE: CASE EVENT DATE: 20140701
